FAERS Safety Report 10573078 (Version 1)
Quarter: 2014Q4

REPORT INFORMATION
  Report Type: Report from Study
  Country: NL (occurrence: NL)
  Receive Date: 20141110
  Receipt Date: 20141110
  Transmission Date: 20150529
  Serious: Yes (Hospitalization)
  Sender: FDA-Public Use
  Company Number: NL-AMGEN-NLDSL2014085479

PATIENT
  Age: 75 Year
  Sex: Female

DRUGS (1)
  1. XGEVA [Suspect]
     Active Substance: DENOSUMAB
     Indication: PROPHYLAXIS
     Dosage: 1.7 ML (70 MG/ML)
     Route: 058
     Dates: start: 20140922

REACTIONS (4)
  - Lip swelling [Unknown]
  - Hypersensitivity [Unknown]
  - Swelling face [Unknown]
  - Erythema [Unknown]

NARRATIVE: CASE EVENT DATE: 20141104
